FAERS Safety Report 6064622-7 (Version None)
Quarter: 2009Q1

REPORT INFORMATION
  Report Type: 
  Country: None (occurrence: None)
  Receive Date: 20090204
  Receipt Date: 20071220
  Transmission Date: 20090719
  Serious: No
  Sender: FDA-Public Use
  Company Number: A0700008A

PATIENT
  Age: 72 Year
  Sex: Female

DRUGS (3)
  1. ARIXTRA [Suspect]
     Route: 058
     Dates: start: 20071203
  2. ASPIRIN [Concomitant]
  3. ULTRAM [Concomitant]

REACTIONS (2)
  - PLATELET COUNT INCREASED [None]
  - URINARY TRACT INFECTION [None]
